FAERS Safety Report 7244899-2 (Version None)
Quarter: 2011Q1

REPORT INFORMATION
  Report Type: 
  Country: None (occurrence: None)
  Receive Date: 20110126
  Receipt Date: 20110117
  Transmission Date: 20110831
  Serious: Yes (Hospitalization)
  Sender: FDA-Public Use
  Company Number: CA-JNJFOC-20101204732

PATIENT
  Age: 50 Year
  Sex: Female
  Weight: 97.52 kg

DRUGS (6)
  1. METFORMIN HCL [Concomitant]
     Indication: DIABETES MELLITUS
     Route: 048
  2. AMLODIPINE [Concomitant]
     Indication: HYPERTENSION
     Route: 048
  3. METHOTREXATE [Concomitant]
     Indication: RHEUMATOID ARTHRITIS
     Dosage: DOSE: 8 TABLETS PER WEEK
     Route: 048
  4. REMICADE [Suspect]
     Indication: RHEUMATOID ARTHRITIS
     Dosage: 23 INFUSIONS ON UNSPECIFED DATES
     Route: 042
  5. SYNTHROID [Concomitant]
     Indication: HYPOTHYROIDISM
     Route: 048
  6. REMICADE [Suspect]
     Route: 042

REACTIONS (2)
  - DEPRESSION [None]
  - FIBROMYALGIA [None]
